FAERS Safety Report 5889844-7 (Version None)
Quarter: 2008Q3

REPORT INFORMATION
  Report Type: 
  Country: None (occurrence: None)
  Receive Date: 20080919
  Receipt Date: 20080911
  Transmission Date: 20090109
  Serious: Yes (Other)
  Sender: FDA-Public Use
  Company Number: US-TYCO HEALTHCARE/MALLINCKRODT-T200700907

PATIENT

DRUGS (6)
  1. LORTAB [Suspect]
     Indication: CANCER PAIN
     Dosage: 5 MG, QD
     Route: 048
     Dates: start: 20070720, end: 20070724
  2. LEXAPRO [Suspect]
     Indication: DEPRESSION
     Dosage: 10 MG, QD
     Route: 048
     Dates: start: 20040101
  3. GEMZAR                             /01215702/ [Suspect]
     Indication: LUNG NEOPLASM MALIGNANT
     Dates: end: 20070724
  4. SPIRIVA [Concomitant]
  5. SEREVENT [Concomitant]
  6. CHEMOTHERAPEUTICS NOS [Concomitant]
     Indication: LUNG NEOPLASM MALIGNANT

REACTIONS (3)
  - CONFUSIONAL STATE [None]
  - DRUG INTERACTION [None]
  - DYSPNOEA [None]
